FAERS Safety Report 11883229 (Version 1)
Quarter: 2015Q4

REPORT INFORMATION
  Report Type: Report from Study
  Country: DE (occurrence: DE)
  Receive Date: 20151231
  Receipt Date: 20151231
  Transmission Date: 20160305
  Serious: Yes (Hospitalization)
  Sender: FDA-Public Use
  Company Number: PHHO2015DE019938

PATIENT
  Age: 68 Year
  Sex: Male
  Weight: 104.4 kg

DRUGS (5)
  1. PREDNISON [Concomitant]
     Active Substance: PREDNISONE
     Dosage: 7.5 MG
     Route: 065
     Dates: start: 20151221
  2. TACROLIMUS. [Suspect]
     Active Substance: TACROLIMUS
     Indication: RENAL TRANSPLANT
     Dosage: 6.0-0-5.5
     Route: 065
     Dates: start: 20150902, end: 20151221
  3. PREDNISON [Concomitant]
     Active Substance: PREDNISONE
     Indication: RENAL TRANSPLANT
     Dosage: 10 MG
     Route: 065
     Dates: start: 20150926, end: 20151125
  4. CELLCEPT [Suspect]
     Active Substance: MYCOPHENOLATE MOFETIL\MYCOPHENOLATE MOFETIL HYDROCHLORIDE
     Indication: RENAL TRANSPLANT
     Dosage: 500 MG, BID (500-0-500)
     Route: 065
     Dates: start: 20150902, end: 20151221
  5. NO TREATMENT RECEIVED [Suspect]
     Active Substance: UNSPECIFIED INGREDIENT
     Indication: RENAL TRANSPLANT
     Dosage: NO TREATMENT
     Route: 065

REACTIONS (2)
  - Lymphocele [Unknown]
  - Gastroenteritis norovirus [Recovered/Resolved]

NARRATIVE: CASE EVENT DATE: 20151125
